FAERS Safety Report 5235614-2 (Version None)
Quarter: 2007Q1

REPORT INFORMATION
  Report Type: 
  Country: None (occurrence: None)
  Receive Date: 20070212
  Receipt Date: 20070207
  Transmission Date: 20070707
  Serious: Yes (Death, Hospitalization, Other)
  Sender: FDA-Public Use
  Company Number: PHRM2006FR02942

PATIENT
  Age: 62 Year
  Sex: Female
  Weight: 45 kg

DRUGS (3)
  1. ZOMETA [Suspect]
     Indication: METASTASES TO BONE
     Dosage: 4 MG, UNK
     Route: 042
     Dates: start: 20040216, end: 20060808
  2. TRAMADOL HCL [Concomitant]
     Indication: BONE PAIN
     Dosage: 100 MG, BID
  3. PREDNISONE [Concomitant]
     Indication: BONE PAIN
     Dosage: 20 MG DAILY

REACTIONS (8)
  - ALVEOLITIS [None]
  - BREAST CANCER [None]
  - COMPUTERISED TOMOGRAM ABNORMAL [None]
  - FISTULA [None]
  - OSTEITIS [None]
  - OSTEONECROSIS [None]
  - SURGERY [None]
  - SWELLING FACE [None]
